FAERS Safety Report 8130967-X (Version None)
Quarter: 2012Q1

REPORT INFORMATION
  Report Type: 
  Country: None (occurrence: None)
  Receive Date: 20120213
  Receipt Date: 20120207
  Transmission Date: 20120608
  Serious: No
  Sender: FDA-Public Use
  Company Number: US-PFIZER INC-2012033761

PATIENT
  Sex: Female
  Weight: 55.782 kg

DRUGS (3)
  1. CELEBREX [Suspect]
     Indication: HIP ARTHROPLASTY
     Dosage: 200 MG, AS NEEDED
     Route: 048
     Dates: start: 20120203, end: 20120206
  2. BYETTA [Concomitant]
     Indication: DIABETES MELLITUS
     Dosage: 10 MG, 2X/DAY
  3. METFORMIN [Concomitant]
     Indication: DIABETES MELLITUS
     Dosage: 1000 MG, 2X/DAY

REACTIONS (1)
  - BLOOD GLUCOSE INCREASED [None]
